FAERS Safety Report 9745822 (Version 1)
Quarter: 2013Q4

REPORT INFORMATION
  Report Type: Spontaneous
  Country: US (occurrence: None)
  Receive Date: 20131206
  Receipt Date: 20131206
  Transmission Date: 20140711
  Serious: No
  Sender: FDA-Public Use
  Company Number: None

PATIENT
  Age: 52 Year
  Sex: Female

DRUGS (1)
  1. ENBREL 25MG VIALS AMGEN [Suspect]
     Dosage: INJECTABLE SUBCUTANEOS 057?
     Route: 058

REACTIONS (2)
  - Injection site reaction [None]
  - Injection site rash [None]
